FAERS Safety Report 21973168 (Version 1)
Quarter: 2023Q1

REPORT INFORMATION
  Report Type: Spontaneous
  Country: US (occurrence: None)
  Receive Date: 20230207
  Receipt Date: 20230207
  Transmission Date: 20230417
  Serious: No
  Sender: FDA-Public Use
  Company Number: None

PATIENT
  Age: 62 Year
  Sex: Female
  Weight: 70.31 kg

DRUGS (1)
  1. SKYRIZI [Suspect]
     Active Substance: RISANKIZUMAB-RZAA
     Indication: Psoriasis
     Dosage: INJECT 150MG (1 PEN ) SUBCUTANEOUSLY  AT WEEK 0 AND WEEK 4 AS DIRECTED?
     Route: 058
     Dates: start: 202210

REACTIONS (2)
  - Respiratory failure [None]
  - Intentional dose omission [None]
